FAERS Safety Report 12455608 (Version 1)
Quarter: 2016Q2

REPORT INFORMATION
  Report Type: Spontaneous
  Country: US (occurrence: None)
  Receive Date: 20160609
  Receipt Date: 20160609
  Transmission Date: 20160815
  Serious: Yes (Hospitalization, Other)
  Sender: FDA-Public Use
  Company Number: None

PATIENT
  Age: 69 Year
  Sex: Male
  Weight: 111.1 kg

DRUGS (2)
  1. IBUPROFEN. [Suspect]
     Active Substance: IBUPROFEN
     Indication: PAIN
     Route: 048
     Dates: start: 20100225, end: 20160427
  2. ASPIRIN. [Suspect]
     Active Substance: ASPIRIN
     Indication: CARDIOVASCULAR EVENT PROPHYLAXIS
     Route: 058
     Dates: start: 20070723, end: 20160427

REACTIONS (13)
  - Pneumonia [None]
  - Respiratory failure [None]
  - Gastric ulcer [None]
  - Tachycardia [None]
  - Melaena [None]
  - Hypotension [None]
  - Mental status changes [None]
  - Septic shock [None]
  - Anaemia [None]
  - Acidosis [None]
  - Azotaemia [None]
  - Acute kidney injury [None]
  - Deep vein thrombosis [None]

NARRATIVE: CASE EVENT DATE: 20160527
